FAERS Safety Report 7674562-5 (Version None)
Quarter: 2011Q3

REPORT INFORMATION
  Report Type: 
  Country: None (occurrence: None)
  Receive Date: 20110810
  Receipt Date: 20110802
  Transmission Date: 20111222
  Serious: Yes (Death)
  Sender: FDA-Public Use
  Company Number: US-GENZYME-CERZ-1001923

PATIENT
  Age: 26 Year

DRUGS (2)
  1. PROSTACYCLIN [Concomitant]
     Indication: PULMONARY HYPERTENSION
     Route: 065
  2. CEREZYME [Suspect]
     Indication: GAUCHER'S DISEASE
     Route: 042

REACTIONS (2)
  - SEPSIS [None]
  - PULMONARY ARTERIAL HYPERTENSION [None]
